FAERS Safety Report 5325742-5 (Version None)
Quarter: 2007Q2

REPORT INFORMATION
  Report Type: 
  Country: None (occurrence: None)
  Receive Date: 20070515
  Receipt Date: 20070511
  Transmission Date: 20071010
  Serious: Yes (Other)
  Sender: FDA-Public Use
  Company Number: US-MERCK-0705USA02453

PATIENT
  Age: 31 Year
  Sex: Male

DRUGS (3)
  1. PROPECIA [Suspect]
     Indication: ALOPECIA
     Route: 048
     Dates: start: 20061101, end: 20070101
  2. KEPPRA [Concomitant]
     Route: 065
  3. CARBATROL [Concomitant]
     Route: 065

REACTIONS (2)
  - AURA [None]
  - CONVULSION [None]
